FAERS Safety Report 12779845 (Version 1)
Quarter: 2016Q3

REPORT INFORMATION
  Report Type: Spontaneous
  Country: RO (occurrence: RO)
  Receive Date: 20160926
  Receipt Date: 20160926
  Transmission Date: 20161109
  Serious: Yes (Hospitalization)
  Sender: FDA-Public Use
  Company Number: RO-ABBVIE-16K-135-1703425-00

PATIENT
  Sex: Female
  Weight: 86 kg

DRUGS (2)
  1. METFOGAMMA [Concomitant]
     Indication: DIABETES MELLITUS
     Route: 048
     Dates: start: 2003
  2. HUMIRA [Suspect]
     Active Substance: ADALIMUMAB
     Indication: ANKYLOSING SPONDYLITIS
     Route: 058
     Dates: start: 20100909, end: 20160810

REACTIONS (1)
  - Lymphadenitis [Not Recovered/Not Resolved]
